FAERS Safety Report 6144865-4 (Version None)
Quarter: 2009Q2

REPORT INFORMATION
  Report Type: 
  Country: None (occurrence: None)
  Receive Date: 20090406
  Receipt Date: 20090330
  Transmission Date: 20091009
  Serious: Yes (Hospitalization)
  Sender: FDA-Public Use
  Company Number: PHHY2009GB09386

PATIENT
  Sex: Female

DRUGS (3)
  1. ACLASTA [Suspect]
     Indication: OSTEOPOROSIS
     Dosage: 5 MG, UNK
     Dates: start: 20090227
  2. PARACODOL [Concomitant]
  3. DEPO-MEDRONE [Concomitant]
     Indication: RHEUMATOID ARTHRITIS
     Dosage: MONTHLY
     Route: 030

REACTIONS (3)
  - CHILLS [None]
  - HYPOTENSION [None]
  - VOMITING [None]
